FAERS Safety Report 14362553 (Version 3)
Quarter: 2018Q1

REPORT INFORMATION
  Report Type: Report from Study
  Country: FR (occurrence: FR)
  Receive Date: 20180108
  Receipt Date: 20180216
  Transmission Date: 20180509
  Serious: Yes (Hospitalization, Other)
  Sender: FDA-Public Use
  Company Number: FR-TEVA-2018-FR-844375

PATIENT
  Age: 57 Year
  Sex: Male
  Weight: 65 kg

DRUGS (7)
  1. FLUOROURACIL. [Suspect]
     Active Substance: FLUOROURACIL
     Indication: PANCREATIC NEUROENDOCRINE TUMOUR METASTATIC
     Dosage: UNK, CYCLIC, EVERY 14 DAYS (SIX CYCLES)
     Route: 065
     Dates: start: 20170201, end: 20170723
  2. SUNITINIB MALATE. [Suspect]
     Active Substance: SUNITINIB MALATE
     Indication: PANCREATIC NEUROENDOCRINE TUMOUR METASTATIC
     Dosage: 37.5 MILLIGRAM DAILY; 37.5 MG, DAILY
     Route: 065
     Dates: start: 20151207, end: 20170116
  3. INSULIN [Concomitant]
     Active Substance: INSULIN NOS
     Indication: TYPE 2 DIABETES MELLITUS
     Dosage: UNK
  4. FOLINIC ACID [Suspect]
     Active Substance: LEUCOVORIN
     Dosage: UNK, CYCLIC, EVERY 14 DAYS (SIX CYCLES)
     Route: 065
     Dates: start: 20170201, end: 20170723
  5. FLUOROURACIL. [Suspect]
     Active Substance: FLUOROURACIL
     Dosage: UNK, CYCLIC (ONLY 1 CYCLE, EVERY 14 DAYS)
     Route: 065
     Dates: start: 20170724
  6. OXALIPLATIN. [Suspect]
     Active Substance: OXALIPLATIN
     Indication: PANCREATIC NEUROENDOCRINE TUMOUR METASTATIC
     Dosage: UNK, CYCLIC, EVERY 14 DAYS (SIX CYCLES)
     Route: 065
     Dates: start: 20170201, end: 20170723
  7. FOLINIC ACID [Suspect]
     Active Substance: LEUCOVORIN
     Indication: PANCREATIC NEUROENDOCRINE TUMOUR METASTATIC
     Dosage: UNK, CYCLIC, ONLY 1 CYCLE VERY 14 DAYS
     Route: 065
     Dates: start: 20170724

REACTIONS (13)
  - Endocarditis [Recovering/Resolving]
  - Small intestinal obstruction [Recovering/Resolving]
  - General physical health deterioration [Unknown]
  - Vomiting [Recovered/Resolved]
  - Hypercalcaemia [Not Recovered/Not Resolved]
  - Paraesthesia [Not Recovered/Not Resolved]
  - Sepsis [Recovered/Resolved]
  - Hypoglycaemia [Recovered/Resolved]
  - Hypercalcaemia [Recovering/Resolving]
  - Diarrhoea [Recovered/Resolved]
  - Intestinal obstruction [Unknown]
  - Hypokalaemia [Recovered/Resolved]
  - Abdominal pain [Unknown]

NARRATIVE: CASE EVENT DATE: 2016
